FAERS Safety Report 11193416 (Version 1)
Quarter: 2015Q2

REPORT INFORMATION
  Report Type: Spontaneous
  Country: IT (occurrence: IT)
  Receive Date: 20150616
  Receipt Date: 20150616
  Transmission Date: 20150821
  Serious: Yes (Other)
  Sender: FDA-Public Use
  Company Number: IT-MYLANLABS-2015M1019415

PATIENT

DRUGS (8)
  1. METHYLPREDNISOLONE. [Interacting]
     Active Substance: METHYLPREDNISOLONE
     Indication: ENDOCRINE OPHTHALMOPATHY
     Dosage: ADMINISTERED FOR 16 WEEKS
     Route: 041
  2. VITAMIN D                          /00107901/ [Concomitant]
     Active Substance: ERGOCALCIFEROL
  3. LEVOTHYROXINE SODIUM. [Concomitant]
     Active Substance: LEVOTHYROXINE SODIUM
     Indication: BASEDOW^S DISEASE
     Route: 065
  4. CARVEDILOL. [Concomitant]
     Active Substance: CARVEDILOL
     Indication: HYPERTENSIVE CARDIOMYOPATHY
     Route: 065
  5. SIMVASTATIN. [Suspect]
     Active Substance: SIMVASTATIN
     Indication: HYPERTENSIVE CARDIOMYOPATHY
     Route: 065
  6. LYSINE ACETYLSALICYLIC [Concomitant]
     Active Substance: ASPIRIN LYSINE
     Indication: HYPERTENSIVE CARDIOMYOPATHY
     Route: 065
  7. CALCIUM [Concomitant]
     Active Substance: CALCIUM
     Route: 065
  8. RAMIPRIL. [Concomitant]
     Active Substance: RAMIPRIL
     Indication: HYPERTENSIVE CARDIOMYOPATHY
     Route: 065

REACTIONS (2)
  - Drug interaction [Unknown]
  - Hepatic function abnormal [Recovered/Resolved]
